FAERS Safety Report 6683111-X (Version None)
Quarter: 2010Q2

REPORT INFORMATION
  Report Type: 
  Country: None (occurrence: None)
  Receive Date: 20100415
  Receipt Date: 20100412
  Transmission Date: 20101027
  Serious: Yes (Hospitalization)
  Sender: FDA-Public Use
  Company Number: US-MERCK-1004USA01635

PATIENT
  Age: 67 Year
  Sex: Male

DRUGS (9)
  1. JANUMET [Suspect]
     Indication: TYPE 2 DIABETES MELLITUS
     Route: 048
     Dates: start: 20090101
  2. TRICOR [Concomitant]
     Route: 065
  3. BENICAR [Concomitant]
     Route: 065
  4. AMLODIPINE BESYLATE [Concomitant]
     Route: 065
  5. AMOXICILLIN AND CLAVULANATE POTASSIUM [Concomitant]
     Route: 065
  6. ASPIRIN [Concomitant]
     Route: 065
  7. GLIMEPIRIDE [Concomitant]
     Route: 065
  8. CYMBALTA [Concomitant]
     Route: 065
  9. AZOR (ALPRAZOLAM) [Concomitant]
     Route: 065

REACTIONS (9)
  - ASTHENIA [None]
  - BLOOD GLUCOSE DECREASED [None]
  - CHILLS [None]
  - DYSPNOEA [None]
  - ERYTHEMA [None]
  - OEDEMA PERIPHERAL [None]
  - PYREXIA [None]
  - SKIN DISCOLOURATION [None]
  - SKIN EXFOLIATION [None]
